FAERS Safety Report 14021990 (Version 1)
Quarter: 2017Q3

REPORT INFORMATION
  Report Type: Spontaneous
  Country: US (occurrence: US)
  Receive Date: 20170928
  Receipt Date: 20170928
  Transmission Date: 20171128
  Serious: Yes (Disabling)
  Sender: FDA-Public Use
  Company Number: None

PATIENT
  Sex: Male
  Weight: 78.75 kg

DRUGS (5)
  1. SYMVISTATON [Concomitant]
  2. AMIODARONE [Suspect]
     Active Substance: AMIODARONE
     Indication: ATRIAL FIBRILLATION
     Dosage: ?          QUANTITY:1 CAPSULE(S);?
     Route: 048
     Dates: start: 20170701, end: 20170916
  3. LOTREL [Concomitant]
     Active Substance: AMLODIPINE BESYLATE\BENAZEPRIL HYDROCHLORIDE
  4. METOPROLOL. [Concomitant]
     Active Substance: METOPROLOL
  5. XARELTO [Concomitant]
     Active Substance: RIVAROXABAN

REACTIONS (11)
  - Pneumonia [None]
  - Photopsia [None]
  - Pulmonary toxicity [None]
  - Cardiac failure congestive [None]
  - Fluid retention [None]
  - Dyspnoea [None]
  - Cough [None]
  - Halo vision [None]
  - Tremor [None]
  - Off label use [None]
  - Pain in extremity [None]

NARRATIVE: CASE EVENT DATE: 20170815
